FAERS Safety Report 7077606-7 (Version None)
Quarter: 2010Q4

REPORT INFORMATION
  Report Type: 
  Country: None (occurrence: None)
  Receive Date: 20101101
  Receipt Date: 20101021
  Transmission Date: 20110411
  Serious: Yes (Hospitalization, Other)
  Sender: FDA-Public Use
  Company Number: US-JNJFOC-20101006545

PATIENT
  Sex: Male
  Weight: 111.13 kg

DRUGS (16)
  1. REMICADE [Suspect]
     Indication: CROHN'S DISEASE
     Dosage: STARTED TREATMENT 5 OR 6 YEARS AGO
     Route: 042
  2. REMICADE [Suspect]
     Route: 042
  3. DIPENTUM [Concomitant]
     Indication: CROHN'S DISEASE
  4. CARAFATE [Concomitant]
     Route: 048
  5. SERTRALINE HYDROCHLORIDE [Concomitant]
  6. URSODIOL [Concomitant]
     Indication: LIVER DISORDER
     Route: 048
  7. SPIRONOLACTONE [Concomitant]
     Indication: FLUID IMBALANCE
  8. LASIX [Concomitant]
     Indication: FLUID IMBALANCE
     Route: 048
  9. OMEPRAZOLE [Concomitant]
     Indication: GASTRIC DISORDER
     Route: 048
  10. FIBERCON [Concomitant]
     Route: 048
  11. METAMUCIL-2 [Concomitant]
     Route: 048
  12. METRONIDAZOLE [Concomitant]
     Route: 048
  13. NOVOLOG [Concomitant]
     Indication: BLOOD GLUCOSE ABNORMAL
     Dosage: DOSE IS 100 U
     Route: 058
  14. NOVOLOG [Concomitant]
     Dosage: DOSE IS 100 UNITS
     Route: 058
  15. PREDNISONE [Concomitant]
     Indication: CROHN'S DISEASE
     Route: 048
  16. BENADRYL [Concomitant]
     Indication: PREMEDICATION

REACTIONS (10)
  - ABNORMAL LOSS OF WEIGHT [None]
  - AMMONIA ABNORMAL [None]
  - ARTHRALGIA [None]
  - BLOOD COUNT ABNORMAL [None]
  - BLOOD GLUCOSE INCREASED [None]
  - BONE DISORDER [None]
  - DIZZINESS [None]
  - INCOHERENT [None]
  - PAIN IN EXTREMITY [None]
  - PRURITUS [None]
